FAERS Safety Report 25989948 (Version 1)
Quarter: 2025Q4

REPORT INFORMATION
  Report Type: Spontaneous
  Country: US (occurrence: None)
  Receive Date: 20251101
  Receipt Date: 20251101
  Transmission Date: 20260118
  Serious: Yes (Other)
  Sender: FDA-CTU
  Company Number: None

PATIENT
  Age: 42 Year
  Sex: Male
  Weight: 78.75 kg

DRUGS (1)
  1. ZYRTEC [Suspect]
     Active Substance: CETIRIZINE HYDROCHLORIDE
     Indication: Hypersensitivity
     Dates: start: 20230301, end: 20231120

REACTIONS (5)
  - Withdrawal syndrome [None]
  - Middle insomnia [None]
  - Pruritus [None]
  - Pruritus [None]
  - Pruritus [None]

NARRATIVE: CASE EVENT DATE: 20231121
